FAERS Safety Report 9901145 (Version 1)
Quarter: 2014Q1

REPORT INFORMATION
  Report Type: Spontaneous
  Country: US (occurrence: US)
  Receive Date: 20140217
  Receipt Date: 20140217
  Transmission Date: 20141002
  Serious: Yes (Other)
  Sender: FDA-Public Use
  Company Number: US-PFIZER INC-2014043975

PATIENT
  Age: 78 Year
  Sex: Female
  Weight: 72.56 kg

DRUGS (3)
  1. CELEBREX [Suspect]
     Indication: CHONDROPATHY
     Dosage: 200 MG, 1X/DAY
     Route: 048
     Dates: start: 2006
  2. CELEBREX [Suspect]
     Indication: ARTHRITIS
  3. BABY ASPIRIN [Concomitant]
     Dosage: UNK, 1X/DAY

REACTIONS (3)
  - Arthritis [Unknown]
  - Chondropathy [Unknown]
  - Drug ineffective for unapproved indication [Unknown]
